FAERS Safety Report 12712249 (Version 2)
Quarter: 2016Q3

REPORT INFORMATION
  Report Type: Spontaneous
  Country: US (occurrence: US)
  Receive Date: 20160902
  Receipt Date: 20160912
  Transmission Date: 20161109
  Serious: Yes (Life-Threatening, Hospitalization, Other)
  Sender: FDA-Public Use
  Company Number: US-PFIZER INC-2016409238

PATIENT
  Age: 29 Year
  Sex: Male

DRUGS (4)
  1. RESTORIL [Suspect]
     Active Substance: TEMAZEPAM
     Indication: ANXIETY
     Dosage: UNK
  2. EFFEXOR [Suspect]
     Active Substance: VENLAFAXINE HYDROCHLORIDE
     Indication: DEPRESSION
  3. RESTORIL [Suspect]
     Active Substance: TEMAZEPAM
     Indication: DEPRESSION
  4. EFFEXOR [Suspect]
     Active Substance: VENLAFAXINE HYDROCHLORIDE
     Indication: ANXIETY
     Dosage: UNK

REACTIONS (10)
  - Bacteraemia [Unknown]
  - Septic shock [Unknown]
  - Dehydration [Unknown]
  - Small intestinal obstruction [Unknown]
  - Megacolon [Unknown]
  - Post procedural complication [Unknown]
  - Tachycardia [Unknown]
  - Gastrointestinal necrosis [Unknown]
  - Tachypnoea [Unknown]
  - Intestinal ischaemia [Unknown]
